FAERS Safety Report 5739070-7 (Version None)
Quarter: 2008Q2

REPORT INFORMATION
  Report Type: 
  Country: None (occurrence: None)
  Receive Date: 20080515
  Receipt Date: 20080509
  Transmission Date: 20081010
  Serious: Yes (Hospitalization)
  Sender: FDA-Public Use
  Company Number: CH-ASTRAZENECA-2008PK00984

PATIENT
  Age: 297 Day
  Sex: Male
  Weight: 7.6 kg

DRUGS (2)
  1. OMEPRAZOLE [Suspect]
     Indication: GASTROOESOPHAGEAL REFLUX DISEASE
     Route: 048
     Dates: end: 20041022
  2. OMEPRAZOLE [Suspect]
     Route: 048
     Dates: start: 20041022

REACTIONS (2)
  - EOSINOPHILIA [None]
  - LEUKOCYTOSIS [None]
